FAERS Safety Report 15172201 (Version 1)
Quarter: 2018Q3

REPORT INFORMATION
  Report Type: Spontaneous
  Country: US (occurrence: US)
  Receive Date: 20180720
  Receipt Date: 20180720
  Transmission Date: 20181010
  Serious: Yes (Hospitalization)
  Sender: FDA-Public Use
  Company Number: US-PFIZER INC-2017230193

PATIENT
  Age: 70 Year
  Sex: Female
  Weight: 83.9 kg

DRUGS (22)
  1. MIRAPEX [Concomitant]
     Active Substance: PRAMIPEXOLE DIHYDROCHLORIDE
     Indication: RESTLESS LEGS SYNDROME
     Dosage: 0.5 MG, 3X/DAY
     Route: 048
  2. ANTIVERT [Concomitant]
     Active Substance: MECLIZINE HYDROCHLORIDE
     Dosage: 25 MG, AS NEEDED (EVERY FIVE MINUTE)
     Route: 048
  3. LYRICA [Suspect]
     Active Substance: PREGABALIN
     Dosage: 25 MG, 3X/DAY
     Route: 048
     Dates: start: 20170420
  4. INDERAL [Concomitant]
     Active Substance: PROPRANOLOL HYDROCHLORIDE
     Dosage: 80 MG, 3X/DAY
     Route: 048
  5. CITALOPRAM [Concomitant]
     Active Substance: CITALOPRAM HYDROBROMIDE
     Indication: DEPRESSION
     Dosage: 40 MG, 1X/DAY (ONCE A DAY)
  6. XANAX [Concomitant]
     Active Substance: ALPRAZOLAM
     Indication: ANXIETY
     Dosage: 0.05 MG, AS NEEDED
  7. THERAGRAN [Concomitant]
     Active Substance: VITAMINS
     Dosage: 1 DF, DAILY
     Route: 048
  8. MYCOSTATINE [Concomitant]
     Active Substance: NYSTATIN
     Dosage: 5 ML, 4X/DAY
     Route: 048
  9. KENALOG [Concomitant]
     Active Substance: TRIAMCINOLONE ACETONIDE
     Dosage: UNK UNK, 2X/DAY
     Route: 061
  10. LYRICA [Suspect]
     Active Substance: PREGABALIN
     Indication: NERVE COMPRESSION
     Dosage: 100 MG, 3X/DAY
     Route: 048
     Dates: start: 20170420
  11. WARFARIN [Concomitant]
     Active Substance: WARFARIN
     Indication: THROMBOSIS
     Dosage: UNK UNK, 1X/DAY (1?2 MG ONCE A DAY)
     Dates: start: 201807
  12. INDERAL [Concomitant]
     Active Substance: PROPRANOLOL HYDROCHLORIDE
     Dosage: 60 MG, 3X/DAY
     Route: 048
  13. MOBIC [Concomitant]
     Active Substance: MELOXICAM
     Dosage: 15 MG, 2X/DAY
     Route: 048
  14. KLONOPIN [Concomitant]
     Active Substance: CLONAZEPAM
     Indication: RESTLESS LEGS SYNDROME
     Dosage: 1 MG, 1X/DAY (ONCE A DAY)
  15. KLONOPIN [Concomitant]
     Active Substance: CLONAZEPAM
     Dosage: 1.5 MG, 1X/DAY(AT BED TIME)
     Route: 048
  16. TOPIRAMATE. [Concomitant]
     Active Substance: TOPIRAMATE
     Indication: ESSENTIAL TREMOR
     Dosage: 100 MG, 2X/DAY
     Dates: start: 201802
  17. XANAX [Concomitant]
     Active Substance: ALPRAZOLAM
     Indication: SLEEP DISORDER
     Dosage: 0.5 MG, AS NEEDED (3 TIMES DAILY AS NEEDED)
     Route: 048
  18. MOBIC [Concomitant]
     Active Substance: MELOXICAM
     Dosage: 7.5 MG, 1X/DAY
  19. FLEXERIL [Concomitant]
     Active Substance: CYCLOBENZAPRINE HYDROCHLORIDE
     Indication: MUSCLE SPASMS
     Dosage: 10 MG, AS NEEDED (3 TIMES DAILY)
     Route: 048
  20. CYMBALTA [Concomitant]
     Active Substance: DULOXETINE HYDROCHLORIDE
     Dosage: 30 MG, 1X/DAY
  21. INDERAL [Concomitant]
     Active Substance: PROPRANOLOL HYDROCHLORIDE
     Indication: ESSENTIAL TREMOR
     Dosage: 30 MG, 3X/DAY
  22. NEURONTIN [Concomitant]
     Active Substance: GABAPENTIN
     Dosage: 100 MG, 3X/DAY
     Route: 048

REACTIONS (7)
  - Drug dose omission [Not Recovered/Not Resolved]
  - Peripheral swelling [Recovering/Resolving]
  - Malaise [Recovering/Resolving]
  - Blood disorder [Recovering/Resolving]
  - Dizziness [Recovering/Resolving]
  - Gait disturbance [Recovering/Resolving]
  - Fatigue [Recovering/Resolving]

NARRATIVE: CASE EVENT DATE: 201807
